FAERS Safety Report 8227541-3 (Version None)
Quarter: 2012Q1

REPORT INFORMATION
  Report Type: 
  Country: None (occurrence: None)
  Receive Date: 20120322
  Receipt Date: 20120314
  Transmission Date: 20120608
  Serious: Yes (Life-Threatening, Hospitalization, Other)
  Sender: FDA-Public Use
  Company Number: RO-ASTELLAS-2012US002622

PATIENT
  Sex: Male
  Weight: 83 kg

DRUGS (4)
  1. MANITOL [Concomitant]
     Indication: BRAIN OEDEMA
     Dosage: 250 ML, UID/QD
     Route: 042
     Dates: start: 20120110, end: 20120116
  2. DEXTROSE [Concomitant]
     Indication: VOMITING
     Dosage: 1000 ML, UID/QD
     Route: 042
     Dates: start: 20120110, end: 20120116
  3. TARCEVA [Suspect]
     Indication: NON-SMALL CELL LUNG CANCER
     Dosage: 150 MG, UID/QD
     Route: 048
     Dates: start: 20120109, end: 20120117
  4. METOCLOPRAMIDE [Concomitant]
     Indication: VOMITING
     Dosage: 20 MG, UID/QD
     Route: 042
     Dates: start: 20120112, end: 20120117

REACTIONS (4)
  - VOMITING [None]
  - COMA [None]
  - GRAND MAL CONVULSION [None]
  - MOTOR NEURONE DISEASE [None]
